FAERS Safety Report 21054357 (Version 1)
Quarter: 2022Q3

REPORT INFORMATION
  Report Type: Spontaneous
  Country: US (occurrence: US)
  Receive Date: 20220707
  Receipt Date: 20220707
  Transmission Date: 20221027
  Serious: No
  Sender: FDA-Public Use
  Company Number: US-PFIZER INC-202200916211

PATIENT
  Age: 62 Year
  Sex: Female
  Weight: 81.19 kg

DRUGS (2)
  1. ACCUPRIL [Suspect]
     Active Substance: QUINAPRIL HYDROCHLORIDE
     Indication: Hypertension
     Dosage: 20 MG, DAILY
     Route: 048
  2. ACCUPRIL [Suspect]
     Active Substance: QUINAPRIL HYDROCHLORIDE
     Indication: Arrhythmia

REACTIONS (2)
  - Recalled product administered [Unknown]
  - Cardiac stress test abnormal [Unknown]

NARRATIVE: CASE EVENT DATE: 20220601
